FAERS Safety Report 7714203-1 (Version None)
Quarter: 2011Q3

REPORT INFORMATION
  Report Type: 
  Country: None (occurrence: None)
  Receive Date: 20110829
  Receipt Date: 20110817
  Transmission Date: 20111222
  Serious: No
  Sender: FDA-Public Use
  Company Number: US-BIOGENIDEC-2011BI003763

PATIENT
  Age: 48 Year
  Sex: Female

DRUGS (2)
  1. TYSABRI [Suspect]
     Indication: MULTIPLE SCLEROSIS
     Route: 042
     Dates: start: 20100331
  2. SULPHA ANTIBIOTICS (NOS) [Concomitant]
     Indication: INFECTION PROPHYLAXIS

REACTIONS (4)
  - CYST REMOVAL [None]
  - STAPHYLOCOCCAL INFECTION [None]
  - SLEEP APNOEA SYNDROME [None]
  - CYST [None]
